FAERS Safety Report 9424532 (Version 1)
Quarter: 2013Q3

REPORT INFORMATION
  Report Type: Spontaneous
  Country: US (occurrence: US)
  Receive Date: 20130729
  Receipt Date: 20130729
  Transmission Date: 20140515
  Serious: No
  Sender: FDA-Public Use
  Company Number: US-BAYER-2013-090917

PATIENT
  Age: 84 Year
  Sex: Female
  Weight: 58.96 kg

DRUGS (5)
  1. ALEVE TABLET [Suspect]
     Dosage: 1-2 DF, QD
     Route: 048
     Dates: end: 20130723
  2. PRILOSEC [Concomitant]
  3. LIBRAX [Concomitant]
  4. COLACE [Concomitant]
  5. Q10 [Concomitant]

REACTIONS (2)
  - Constipation [None]
  - Incorrect drug administration duration [None]
